FAERS Safety Report 12740371 (Version 4)
Quarter: 2017Q3

REPORT INFORMATION
  Report Type: Report from Study
  Country: None (occurrence: US)
  Receive Date: 20160913
  Receipt Date: 20170818
  Transmission Date: 20171127
  Serious: Yes (Hospitalization, Other)
  Sender: FDA-Public Use
  Company Number: US-ABBVIE-16K-163-1721991-00

PATIENT
  Age: 83 Year
  Sex: Female

DRUGS (3)
  1. HUMIRA [Suspect]
     Active Substance: ADALIMUMAB
     Indication: COLITIS ULCERATIVE
     Route: 058
     Dates: start: 20141218, end: 20160613
  2. HUMIRA [Suspect]
     Active Substance: ADALIMUMAB
     Route: 058
     Dates: start: 20170209, end: 2017
  3. HUMIRA [Suspect]
     Active Substance: ADALIMUMAB
     Route: 058
     Dates: start: 20160914

REACTIONS (16)
  - Aortic valve incompetence [Recovered/Resolved]
  - Joint swelling [Unknown]
  - Limb injury [Recovering/Resolving]
  - Osteoarthritis [Unknown]
  - Post procedural complication [Not Recovered/Not Resolved]
  - Diarrhoea [Unknown]
  - Pulmonary oedema [Recovered/Resolved]
  - Sepsis [Unknown]
  - Fall [Unknown]
  - Gait disturbance [Not Recovered/Not Resolved]
  - Abdominal distension [Unknown]
  - Spinal fracture [Unknown]
  - Mobility decreased [Not Recovered/Not Resolved]
  - Balance disorder [Unknown]
  - Flatulence [Unknown]
  - Faeces discoloured [Unknown]

NARRATIVE: CASE EVENT DATE: 2016
